FAERS Safety Report 10194159 (Version 1)
Quarter: 2014Q2

REPORT INFORMATION
  Report Type: Spontaneous
  Country: US (occurrence: US)
  Receive Date: 20140524
  Receipt Date: 20140524
  Transmission Date: 20141212
  Serious: No
  Sender: FDA-Public Use
  Company Number: US-SANOFI-AVENTIS-2013SA058747

PATIENT
  Sex: Male

DRUGS (5)
  1. LANTUS SOLOSTAR [Suspect]
     Indication: TYPE 2 DIABETES MELLITUS
     Dosage: PRODUCT STARTED FROM A MONTH AGO. DOSE:20 UNIT(S)
     Route: 051
  2. SOLOSTAR [Suspect]
     Indication: TYPE 2 DIABETES MELLITUS
     Dosage: PRODUCT STARTED FROM A MONTH AGO.
  3. CLONIDINE [Concomitant]
  4. METFORMIN [Concomitant]
  5. HYDROCHLOROTHIAZIDE [Concomitant]

REACTIONS (3)
  - Body temperature increased [Unknown]
  - Fatigue [Unknown]
  - Blood glucose abnormal [Unknown]
